FAERS Safety Report 7634161-8 (Version None)
Quarter: 2011Q3

REPORT INFORMATION
  Report Type: 
  Country: None (occurrence: None)
  Receive Date: 20110725
  Receipt Date: 20110721
  Transmission Date: 20111222
  Serious: No
  Sender: FDA-Public Use
  Company Number: US-PFIZER INC-2011166211

PATIENT
  Sex: Male
  Weight: 104.31 kg

DRUGS (3)
  1. VIAGRA [Suspect]
     Indication: PREMATURE EJACULATION
     Dosage: 50 MG, AS NEEDED
     Route: 048
     Dates: start: 20060101
  2. LISINOPRIL [Concomitant]
     Indication: HYPERTENSION
     Dosage: UNK
  3. SPIRIVA [Concomitant]
     Indication: CHRONIC OBSTRUCTIVE PULMONARY DISEASE
     Dosage: UNK, 2X/DAY

REACTIONS (1)
  - DRUG EFFECT DECREASED [None]
